FAERS Safety Report 5067755-7 (Version None)
Quarter: 2006Q3

REPORT INFORMATION
  Report Type: 
  Country: None (occurrence: None)
  Receive Date: 20060728
  Receipt Date: 20060710
  Transmission Date: 20061208
  Serious: Yes (Other)
  Sender: FDA-Public Use
  Company Number: TW200606005900

PATIENT
  Age: 60 Year
  Sex: Female

DRUGS (3)
  1. EVISTA [Suspect]
     Indication: OSTEOPOROSIS
     Dosage: 60 MG, DAILY (1/D), ORAL
     Route: 048
     Dates: start: 20060401, end: 20060621
  2. ARIMIDEX [Concomitant]
  3. ANTIHISTAMINES [Concomitant]

REACTIONS (2)
  - EYE PRURITUS [None]
  - EYE SWELLING [None]
